FAERS Safety Report 4301483-8 (Version None)
Quarter: 2004Q1

REPORT INFORMATION
  Report Type: 
  Country: None (occurrence: None)
  Receive Date: 20040219
  Receipt Date: 20040210
  Transmission Date: 20041129
  Serious: Yes (Hospitalization)
  Sender: FDA-Public Use
  Company Number: BE-JNJFOC-20040202317

PATIENT
  Age: 43 Year
  Sex: Female

DRUGS (5)
  1. REMICADE [Suspect]
     Indication: CROHN'S DISEASE
     Dosage: INTRAVENOUS; 275 MG, 1 IN 1 DAY, INTRAVENOUS
     Route: 042
     Dates: start: 20020715, end: 20020730
  2. REMICADE [Suspect]
     Indication: CROHN'S DISEASE
     Dosage: INTRAVENOUS; 275 MG, 1 IN 1 DAY, INTRAVENOUS
     Route: 042
     Dates: start: 20040206, end: 20040206
  3. METHOTREXATE [Concomitant]
  4. FOLIC ACID [Concomitant]
  5. YASMIN (PETIBELLE FILMTABLETTEN) [Concomitant]

REACTIONS (10)
  - ARTHRALGIA [None]
  - C-REACTIVE PROTEIN INCREASED [None]
  - CONJUNCTIVITIS [None]
  - CROHN'S DISEASE [None]
  - DIARRHOEA [None]
  - LYMPHOCYTE PERCENTAGE DECREASED [None]
  - NAUSEA [None]
  - NEUTROPHIL PERCENTAGE INCREASED [None]
  - PYREXIA [None]
  - WHITE BLOOD CELL COUNT INCREASED [None]
